FAERS Safety Report 5722548-X (Version None)
Quarter: 2008Q2

REPORT INFORMATION
  Report Type: 
  Country: None (occurrence: None)
  Receive Date: 20080429
  Receipt Date: 20070809
  Transmission Date: 20081010
  Serious: No
  Sender: FDA-Public Use
  Company Number: US-ASTRAZENECA-2007UW19346

PATIENT
  Age: 71 Year
  Sex: Female
  Weight: 70.3 kg

DRUGS (5)
  1. NEXIUM [Suspect]
     Indication: GASTROOESOPHAGEAL REFLUX DISEASE
     Route: 048
  2. ATENOLOL [Concomitant]
  3. DARVOCET [Concomitant]
     Indication: HEADACHE
  4. LEVOXYL [Concomitant]
  5. FENOFIBRATE [Concomitant]
     Indication: BLOOD TRIGLYCERIDES INCREASED

REACTIONS (5)
  - DRY MOUTH [None]
  - GASTROINTESTINAL DISORDER [None]
  - GLOSSODYNIA [None]
  - HEADACHE [None]
  - VERTIGO [None]
